FAERS Safety Report 8287919-9 (Version None)
Quarter: 2012Q2

REPORT INFORMATION
  Report Type: 
  Country: None (occurrence: None)
  Receive Date: 20120416
  Receipt Date: 20120405
  Transmission Date: 20120825
  Serious: Yes (Other)
  Sender: FDA-Public Use
  Company Number: SE-ASTRAZENECA-2012SE22794

PATIENT
  Sex: Female

DRUGS (40)
  1. SYMBICORT [Concomitant]
     Indication: ASTHMA
     Route: 055
  2. ACETYLCYSTEINE [Concomitant]
     Indication: ASTHMA
  3. PROPYLESS [Concomitant]
  4. EPIPEN [Concomitant]
     Indication: HYPERSENSITIVITY
  5. FLUDENT [Concomitant]
  6. DURAGESIC-100 [Concomitant]
     Indication: PAIN
  7. NOVALUZID [Concomitant]
  8. NASONEX [Concomitant]
  9. ARTELAC [Concomitant]
  10. OXYCODONE HCL [Concomitant]
     Indication: PAIN
  11. ACETAMINOPHEN [Concomitant]
  12. PIKASOL FORTE [Concomitant]
  13. FORTIMEL [Concomitant]
  14. VISCOTEARS [Concomitant]
  15. EEZE [Concomitant]
  16. ARTROX [Concomitant]
  17. DENTAN [Concomitant]
  18. SINGULAIR [Concomitant]
     Indication: ASTHMA
  19. ZOLEDRONOC ACID [Concomitant]
     Indication: OSTEOPOROSIS
  20. XYLOCAINE [Concomitant]
     Indication: PRURITUS
  21. HIRUDOID [Concomitant]
  22. NEXIUM [Suspect]
     Indication: GASTROOESOPHAGEAL REFLUX DISEASE
     Route: 048
  23. LEVOTHYROXINE SODIUM [Concomitant]
  24. CETIRIZINE [Concomitant]
     Indication: HYPERSENSITIVITY
  25. LAKTULOS [Concomitant]
     Indication: CONSTIPATION
  26. POSTAFEN [Concomitant]
  27. MILDISON LIPID [Concomitant]
     Indication: PRURITUS
  28. NEXIUM [Suspect]
     Indication: GASTRITIS
     Route: 048
  29. CALCIUM CARBONATE [Concomitant]
     Indication: OSTEOPOROSIS
  30. BETAPRED [Concomitant]
     Indication: HYPERSENSITIVITY
  31. POTASSIUM CHLORIDE [Concomitant]
  32. ALGESAL [Concomitant]
  33. GAVISCON [Concomitant]
  34. DIAZEPAM [Concomitant]
     Indication: MUSCLE SPASMS
  35. CETIRIZINE HCL [Concomitant]
     Indication: HYPERSENSITIVITY
  36. ACETYLCYSTEINE [Concomitant]
     Indication: INCREASED VISCOSITY OF BRONCHIAL SECRETION
  37. FUROSEMIDE [Concomitant]
  38. OXYCONTIN [Concomitant]
     Indication: PAIN
  39. BRICANYL [Concomitant]
     Indication: ASTHMA
  40. LITOMOVE [Concomitant]

REACTIONS (9)
  - SPINAL FRACTURE [None]
  - OSTEOPOROSIS [None]
  - MULTIPLE FRACTURES [None]
  - INTERVERTEBRAL DISC COMPRESSION [None]
  - BILE DUCT STONE [None]
  - FOOT FRACTURE [None]
  - PAIN [None]
  - MUSCLE SPASMS [None]
  - NAUSEA [None]
